FAERS Safety Report 6363654-9 (Version None)
Quarter: 2009Q3

REPORT INFORMATION
  Report Type: 
  Country: None (occurrence: None)
  Receive Date: 20090919
  Receipt Date: 20090706
  Transmission Date: 20100115
  Serious: Yes (Other)
  Sender: FDA-Public Use
  Company Number: US-ABBOTT-09P-163-0583755-00

PATIENT
  Sex: Female
  Weight: 63.56 kg

DRUGS (4)
  1. HUMIRA [Suspect]
     Indication: CROHN'S DISEASE
     Dates: start: 20090612
  2. HUMIRA [Suspect]
     Dates: start: 20090627
  3. HUMIRA [Suspect]
     Dates: start: 20090701
  4. PEPCID [Concomitant]
     Indication: ABDOMINAL DISTENSION

REACTIONS (10)
  - ABDOMINAL DISTENSION [None]
  - ABDOMINAL PAIN [None]
  - CHOLANGITIS [None]
  - CONTUSION [None]
  - FEELING ABNORMAL [None]
  - FEELING HOT [None]
  - FLUSHING [None]
  - HEADACHE [None]
  - NAUSEA [None]
  - VOMITING [None]
